FAERS Safety Report 4559780-7 (Version None)
Quarter: 2005Q1

REPORT INFORMATION
  Report Type: 
  Country: None (occurrence: None)
  Receive Date: 20050107
  Receipt Date: 20040909
  Transmission Date: 20050727
  Serious: Yes (Life-Threatening)
  Sender: FDA-Public Use
  Company Number: 237995

PATIENT
  Age: 68 Year
  Sex: Female
  Weight: 81.6 kg

DRUGS (4)
  1. NOVOLOG [Suspect]
     Indication: INSULIN-REQUIRING TYPE II DIABETES MELLITUS
     Dosage: 36 IU, QD, SUBCUTANEOUS
     Route: 058
     Dates: start: 20000101
  2. LANTUS [Concomitant]
  3. ZESTRIL [Concomitant]
  4. NORVASC [Concomitant]

REACTIONS (2)
  - BLOOD GLUCOSE FLUCTUATION [None]
  - HYPOGLYCAEMIC COMA [None]
